FAERS Safety Report 7516658-4 (Version None)
Quarter: 2011Q2

REPORT INFORMATION
  Report Type: 
  Country: None (occurrence: None)
  Receive Date: 20110601
  Receipt Date: 20110523
  Transmission Date: 20111010
  Serious: Yes (Other)
  Sender: FDA-Public Use
  Company Number: US-ROCHE-778800

PATIENT

DRUGS (2)
  1. CAPECITABINE [Suspect]
     Indication: RECTAL CANCER
     Dosage: FREQUENCY: TWICE DAILY MONDAY THROUGH FRIDAY.
     Route: 048
  2. TNFERADE [Suspect]
     Indication: RECTAL CANCER
     Dosage: DOSE: 4X 10 E10 PARTICLE UNITS IN 2 ML OF INJECTATE.
     Route: 065

REACTIONS (11)
  - SMALL INTESTINAL OBSTRUCTION [None]
  - ANAEMIA [None]
  - LEUKOPENIA [None]
  - LYMPHOPENIA [None]
  - HYPOPHOSPHATAEMIA [None]
  - NEUTROPENIA [None]
  - ABDOMINAL PAIN [None]
  - HYPONATRAEMIA [None]
  - ENTERITIS [None]
  - DIARRHOEA [None]
  - HEPATIC FUNCTION ABNORMAL [None]
